FAERS Safety Report 9271435 (Version 10)
Quarter: 2017Q1

REPORT INFORMATION
  Report Type: Report from Study
  Country: CA (occurrence: CA)
  Receive Date: 20130506
  Receipt Date: 20170224
  Transmission Date: 20170429
  Serious: Yes (Hospitalization, Other)
  Sender: FDA-Public Use
  Company Number: PHHY2013CA029044

PATIENT
  Age: 57 Year
  Sex: Male

DRUGS (5)
  1. SANDOSTATIN LAR DEPOT [Suspect]
     Active Substance: OCTREOTIDE ACETATE
     Dosage: 50 MG, QMO
     Route: 030
  2. SANDOSTATIN LAR DEPOT [Suspect]
     Active Substance: OCTREOTIDE ACETATE
     Indication: NEUROENDOCRINE TUMOUR
     Dosage: 30 MG, QMO
     Route: 030
     Dates: start: 20130501
  3. SANDOSTATIN LAR DEPOT [Suspect]
     Active Substance: OCTREOTIDE ACETATE
     Dosage: 30 MG, QMO
     Route: 065
  4. SANDOSTATIN [Suspect]
     Active Substance: OCTREOTIDE ACETATE
     Indication: NEUROENDOCRINE TUMOUR
     Dosage: 200 UG, TID
     Route: 058
     Dates: start: 20130319, end: 2013
  5. SANDOSTATIN LAR DEPOT [Suspect]
     Active Substance: OCTREOTIDE ACETATE
     Dosage: 40 MG, QMO
     Route: 065

REACTIONS (33)
  - Post-traumatic stress disorder [Unknown]
  - Traumatic shock [Unknown]
  - Dyskinesia [Unknown]
  - Blood urine present [Unknown]
  - Nasal congestion [Unknown]
  - Malaise [Unknown]
  - Confusional state [Unknown]
  - Abdominal pain upper [Unknown]
  - Rhinorrhoea [Unknown]
  - Nasopharyngitis [Unknown]
  - Flushing [Unknown]
  - Disorientation [Unknown]
  - Oropharyngeal pain [Unknown]
  - Depressed mood [Unknown]
  - Decreased appetite [Unknown]
  - Blood pressure increased [Unknown]
  - Cholelithiasis [Unknown]
  - Metastases to liver [Unknown]
  - Malignant neoplasm progression [Unknown]
  - Speech disorder [Unknown]
  - Fatigue [Unknown]
  - Injection site pain [Unknown]
  - Intestinal obstruction [Unknown]
  - Hypersensitivity [Unknown]
  - Agitation [Unknown]
  - Cough [Unknown]
  - Vomiting [Unknown]
  - Diarrhoea [Unknown]
  - Stress [Unknown]
  - Nephrolithiasis [Unknown]
  - Skin reaction [Unknown]
  - Insomnia [Unknown]
  - Myalgia [Unknown]

NARRATIVE: CASE EVENT DATE: 20130409
